FAERS Safety Report 9098043 (Version 1)
Quarter: 2013Q1

REPORT INFORMATION
  Report Type: Spontaneous
  Country: US (occurrence: US)
  Receive Date: 20130213
  Receipt Date: 20130213
  Transmission Date: 20140127
  Serious: No
  Sender: FDA-Public Use
  Company Number: US-009507513-1302USA004229

PATIENT
  Age: 40 Year
  Sex: Male

DRUGS (1)
  1. PROPECIA [Suspect]
     Dosage: 1 MG, QD
     Route: 048
     Dates: start: 2004

REACTIONS (2)
  - Sexual dysfunction [Not Recovered/Not Resolved]
  - Erectile dysfunction [Not Recovered/Not Resolved]
